FAERS Safety Report 9387204 (Version 1)
Quarter: 2013Q3

REPORT INFORMATION
  Report Type: Spontaneous
  Country: DE (occurrence: None)
  Receive Date: 20130702
  Receipt Date: 20130702
  Transmission Date: 20140515
  Serious: Yes (Other)
  Sender: FDA-Public Use
  Company Number: GER/GER/13/0030273

PATIENT
  Age: 26 Year
  Sex: Female

DRUGS (2)
  1. LAMOTRIGINE (LAMOTRIGINE) [Suspect]
     Indication: EPILEPSY
     Dosage: 1 D
     Dates: start: 20070330
  2. THYRONAJOD (JODTHYROX) [Concomitant]

REACTIONS (2)
  - Caesarean section [None]
  - Maternal exposure during pregnancy [None]
